FAERS Safety Report 6589991-0 (Version None)
Quarter: 2010Q1

REPORT INFORMATION
  Report Type: 
  Country: None (occurrence: None)
  Receive Date: 20100219
  Receipt Date: 20100208
  Transmission Date: 20100710
  Serious: Yes (Other)
  Sender: FDA-Public Use
  Company Number: PHHY2010GR06678

PATIENT
  Age: 73 Year
  Sex: Male

DRUGS (3)
  1. LOPRESSOR [Suspect]
     Indication: HYPERTENSION
     Dosage: 50 MG DAILY (SPLITTED 100 MG TABLET INTO HALF)
     Route: 048
     Dates: start: 20091001
  2. RASILEZ (ALISKIREN) [Concomitant]
     Dosage: 150 MG DAILY
  3. AMLOPIN [Concomitant]
     Dosage: 5 MG DAILY

REACTIONS (3)
  - ARRHYTHMIA [None]
  - ARTHRALGIA [None]
  - BRADYCARDIA [None]
